FAERS Safety Report 9424288 (Version 1)
Quarter: 2013Q3

REPORT INFORMATION
  Report Type: Spontaneous
  Country: US (occurrence: None)
  Receive Date: 20130726
  Receipt Date: 20130726
  Transmission Date: 20140515
  Serious: Yes (Death)
  Sender: FDA-Public Use
  Company Number: None

PATIENT
  Age: 0 Day
  Sex: Male

DRUGS (2)
  1. GADAVIST [Suspect]
     Indication: SCAN WITH CONTRAST
     Dosage: 10 CC  1  IV
     Route: 042
  2. GADAVIST [Suspect]
     Indication: NUCLEAR MAGNETIC RESONANCE IMAGING
     Dosage: 10 CC  1  IV
     Route: 042

REACTIONS (3)
  - Burning sensation [None]
  - Anaphylactic reaction [None]
  - Cardiac arrest [None]
